FAERS Safety Report 17614685 (Version 1)
Quarter: 2020Q2

REPORT INFORMATION
  Report Type: Report from Study
  Country: US (occurrence: US)
  Receive Date: 20200402
  Receipt Date: 20200402
  Transmission Date: 20200713
  Serious: Yes (Other)
  Sender: FDA-Public Use
  Company Number: NVSC2020US088976

PATIENT
  Sex: Male

DRUGS (1)
  1. GLEEVEC [Suspect]
     Active Substance: IMATINIB MESYLATE
     Indication: PRODUCT USED FOR UNKNOWN INDICATION
     Route: 065

REACTIONS (5)
  - Chronic graft versus host disease in skin [Unknown]
  - Chronic graft versus host disease [Unknown]
  - Graft versus host disease in lung [Unknown]
  - Disease susceptibility [Unknown]
  - Graft versus host disease in gastrointestinal tract [Unknown]
